FAERS Safety Report 7034784-3 (Version None)
Quarter: 2010Q4

REPORT INFORMATION
  Report Type: 
  Country: None (occurrence: None)
  Receive Date: 20101008
  Receipt Date: 20101004
  Transmission Date: 20110411
  Serious: Yes (Death, Hospitalization)
  Sender: FDA-Public Use
  Company Number: PHHY2010MX36795

PATIENT
  Sex: Female

DRUGS (1)
  1. FEMARA [Suspect]
     Indication: NEOPLASM MALIGNANT
     Dosage: 2.5 MG, QD
     Route: 048
     Dates: start: 20050801

REACTIONS (6)
  - CARDIO-RESPIRATORY ARREST [None]
  - CHOLECYSTECTOMY [None]
  - CHOLELITHIASIS [None]
  - HEPATIC HAEMORRHAGE [None]
  - HEPATITIS [None]
  - HYPOVOLAEMIC SHOCK [None]
